FAERS Safety Report 7578629-1 (Version None)
Quarter: 2011Q2

REPORT INFORMATION
  Report Type: 
  Country: None (occurrence: None)
  Receive Date: 20110628
  Receipt Date: 20110615
  Transmission Date: 20111010
  Serious: Yes (Hospitalization, Other)
  Sender: FDA-Public Use
  Company Number: PHHY2011DE46391

PATIENT
  Sex: Female

DRUGS (9)
  1. METFORMIN HCL [Concomitant]
     Indication: DIABETES MELLITUS
     Dosage: 200 MG, DAILY
     Route: 048
  2. AMLODIPINE [Concomitant]
     Indication: HYPERTENSION
     Dosage: 10 MG, UNK
  3. CITALOPRAM HYDROBROMIDE [Concomitant]
     Indication: DEPRESSION
     Dosage: 20 MG, UNK
  4. LEVOTHYROXINE SODIUM [Concomitant]
     Indication: HYPOTHYROIDISM
     Dosage: 75 UG, UNK
  5. RAMIPRIL [Concomitant]
     Indication: HYPERTENSION
     Dosage: 2.5 MG, UNK
     Route: 048
  6. ZOMETA [Suspect]
     Indication: BREAST CANCER
     Dosage: 4 MG/5 ML, EVERY 4 WEEKS
     Route: 042
     Dates: start: 20110505
  7. FENOFIBRIC ACID [Suspect]
     Dosage: 2.5 MG, UNK
     Route: 048
  8. TRIMIPRAMINE MALEATE [Concomitant]
     Indication: DEPRESSION
     Dosage: 50 MG, UNK
  9. SIMVASTATIN [Concomitant]
     Indication: HYPERLIPIDAEMIA
     Dosage: 10 MG, UNK

REACTIONS (6)
  - ABDOMINAL PAIN [None]
  - CHILLS [None]
  - RED BLOOD CELL SEDIMENTATION RATE INCREASED [None]
  - PYREXIA [None]
  - C-REACTIVE PROTEIN INCREASED [None]
  - MYALGIA [None]
